FAERS Safety Report 5077448-8 (Version None)
Quarter: 2006Q3

REPORT INFORMATION
  Report Type: 
  Country: None (occurrence: None)
  Receive Date: 20060810
  Receipt Date: 20060227
  Transmission Date: 20061208
  Serious: No
  Sender: FDA-Public Use
  Company Number: US-GLAXOSMITHKLINE-A0595620A

PATIENT
  Sex: Female

DRUGS (2)
  1. PAXIL [Suspect]
     Dosage: 12.5MG UNKNOWN
  2. PAXIL CR [Suspect]
     Dosage: 25MG UNKNOWN

REACTIONS (4)
  - DIZZINESS [None]
  - NAUSEA [None]
  - PARAESTHESIA [None]
  - VOMITING [None]
